FAERS Safety Report 21116820 (Version 3)
Quarter: 2023Q2

REPORT INFORMATION
  Report Type: Spontaneous
  Country: JP (occurrence: JP)
  Receive Date: 20220722
  Receipt Date: 20230623
  Transmission Date: 20230721
  Serious: Yes (Other)
  Sender: FDA-Public Use
  Company Number: JP-SA-2022SA290276

PATIENT
  Age: 34 Year
  Sex: Female

DRUGS (2)
  1. DUPIXENT [Suspect]
     Active Substance: DUPILUMAB
     Indication: Chronic eosinophilic rhinosinusitis
     Dosage: 200 MG, QOW
     Route: 058
     Dates: start: 20201209, end: 20211013
  2. DUPIXENT [Suspect]
     Active Substance: DUPILUMAB
     Dosage: UNK
     Route: 058
     Dates: start: 202301

REACTIONS (7)
  - Sarcoidosis [Recovering/Resolving]
  - Skin mass [Recovering/Resolving]
  - Uveitis [Recovering/Resolving]
  - Pulmonary mass [Recovering/Resolving]
  - Lymphadenopathy mediastinal [Recovering/Resolving]
  - Keratic precipitates [Recovering/Resolving]
  - Off label use [Recovering/Resolving]

NARRATIVE: CASE EVENT DATE: 20201209
